FAERS Safety Report 16872958 (Version 1)
Quarter: 2019Q4

REPORT INFORMATION
  Report Type: Spontaneous
  Country: US (occurrence: US)
  Receive Date: 20191001
  Receipt Date: 20191001
  Transmission Date: 20200122
  Serious: No
  Sender: FDA-Public Use
  Company Number: None

PATIENT
  Age: 65 Year
  Sex: Female
  Weight: 103.5 kg

DRUGS (6)
  1. VITAMIN E [Concomitant]
     Active Substance: .ALPHA.-TOCOPHEROL
  2. NITROGLYCERIN SPRAY [Suspect]
     Active Substance: NITROGLYCERIN
     Indication: CHEST PAIN
     Dates: start: 20190925
  3. VITAMIN D [Concomitant]
     Active Substance: VITAMIN D NOS
  4. DENALI SUPPLEMENT [Concomitant]
  5. IODINE KELP [Concomitant]
  6. NITROGLYCERIN SPRAY [Suspect]
     Active Substance: NITROGLYCERIN
     Indication: TACHYCARDIA
     Dates: start: 20190925

REACTIONS (4)
  - Throat tightness [None]
  - Dry mouth [None]
  - Noninfective gingivitis [None]
  - Pruritus [None]

NARRATIVE: CASE EVENT DATE: 20190925
